FAERS Safety Report 10790861 (Version 1)
Quarter: 2015Q1

REPORT INFORMATION
  Report Type: Spontaneous
  Country: US (occurrence: US)
  Receive Date: 20150212
  Receipt Date: 20150212
  Transmission Date: 20150721
  Serious: No
  Sender: FDA-Public Use
  Company Number: US-ELI_LILLY_AND_COMPANY-US201501007129

PATIENT
  Sex: Male

DRUGS (2)
  1. HUMULIN N [Suspect]
     Active Substance: INSULIN HUMAN
     Indication: TYPE 2 DIABETES MELLITUS
     Dosage: 10 U, QD
     Route: 065
     Dates: start: 20140505, end: 201412
  2. HUMALOG [Concomitant]
     Active Substance: INSULIN LISPRO
     Dosage: UNK, PRN
     Route: 065

REACTIONS (1)
  - Diarrhoea [Unknown]
